FAERS Safety Report 24278414 (Version 1)
Quarter: 2024Q3

REPORT INFORMATION
  Report Type: Spontaneous
  Country: US (occurrence: US)
  Receive Date: 20240903
  Receipt Date: 20240903
  Transmission Date: 20241017
  Serious: No
  Sender: ASTELLAS
  Company Number: US-ASTELLAS-2024US022662

PATIENT
  Age: 81 Year
  Sex: Male

DRUGS (1)
  1. XTANDI [Suspect]
     Active Substance: ENZALUTAMIDE
     Indication: Product used for unknown indication
     Dosage: 80 MG, ONCE DAILY
     Route: 065
     Dates: start: 20240802, end: 20240807

REACTIONS (3)
  - Pain in extremity [Unknown]
  - Confusional state [Unknown]
  - Underdose [Unknown]

NARRATIVE: CASE EVENT DATE: 20240802
